FAERS Safety Report 19944225 (Version 1)
Quarter: 2021Q4

REPORT INFORMATION
  Report Type: Spontaneous
  Country: US (occurrence: US)
  Receive Date: 20211011
  Receipt Date: 20211011
  Transmission Date: 20220303
  Serious: No
  Sender: FDA-Public Use
  Company Number: US-JUBILANT CADISTA PHARMACEUTICALS-2021JUB00153

PATIENT
  Age: 69 Year
  Sex: Female
  Weight: 62.6 kg

DRUGS (3)
  1. PREDNISONE [Suspect]
     Active Substance: PREDNISONE
     Indication: Swelling face
     Dosage: 60 MG, 1X/DAY IN THE MORNING
     Dates: start: 20210507, end: 20210509
  2. PREDNISONE [Suspect]
     Active Substance: PREDNISONE
     Indication: Erythema
  3. PREDNISONE [Suspect]
     Active Substance: PREDNISONE
     Indication: Pruritus

REACTIONS (6)
  - Rash [Recovered/Resolved]
  - Blister [Recovering/Resolving]
  - Pruritus [Recovering/Resolving]
  - Dry skin [Recovered/Resolved]
  - Skin exfoliation [Recovered/Resolved]
  - Feeling jittery [Recovered/Resolved]

NARRATIVE: CASE EVENT DATE: 20210501
